FAERS Safety Report 8070848-3 (Version None)
Quarter: 2012Q1

REPORT INFORMATION
  Report Type: 
  Country: None (occurrence: None)
  Receive Date: 20120119
  Receipt Date: 20120112
  Transmission Date: 20120608
  Serious: Yes (Hospitalization)
  Sender: FDA-Public Use
  Company Number: DSA_48855_2012

PATIENT
  Sex: Female

DRUGS (1)
  1. XENAZINE [Suspect]
     Indication: HUNTINGTON'S DISEASE
     Dosage: 90 TAB LETS IN THEREE DAYS, ORAL
     Route: 048
     Dates: start: 20090601

REACTIONS (1)
  - DRUG ABUSE [None]
